FAERS Safety Report 23060017 (Version 2)
Quarter: 2023Q4

REPORT INFORMATION
  Report Type: Spontaneous
  Country: DE (occurrence: DE)
  Receive Date: 20231012
  Receipt Date: 20231101
  Transmission Date: 20240110
  Serious: Yes (Other)
  Sender: FDA-Public Use
  Company Number: DE-JNJFOC-20230947032

PATIENT
  Age: 66 Year
  Sex: Female
  Weight: 70 kg

DRUGS (5)
  1. TREMFYA [Suspect]
     Active Substance: GUSELKUMAB
     Indication: Psoriasis
     Dosage: EVERY 2 MONTHS
     Route: 065
     Dates: start: 20220118, end: 20230601
  2. TREMFYA [Suspect]
     Active Substance: GUSELKUMAB
  3. TREMFYA [Suspect]
     Active Substance: GUSELKUMAB
  4. PERMETHRIN [Concomitant]
     Active Substance: PERMETHRIN
  5. STELARA [Concomitant]
     Active Substance: USTEKINUMAB
     Indication: Crohn^s disease

REACTIONS (4)
  - Dysphagia [Recovered/Resolved]
  - Alopecia [Unknown]
  - Weight decreased [Unknown]
  - Panic attack [Unknown]

NARRATIVE: CASE EVENT DATE: 20230602
